FAERS Safety Report 21098780 (Version 1)
Quarter: 2022Q3

REPORT INFORMATION
  Report Type: Spontaneous
  Country: US (occurrence: US)
  Receive Date: 20220719
  Receipt Date: 20220719
  Transmission Date: 20221027
  Serious: Yes (Other)
  Sender: FDA-Public Use
  Company Number: US-MYLANLABS-2022M1078713

PATIENT
  Age: 21 Year
  Sex: Male

DRUGS (7)
  1. DOXORUBICIN [Suspect]
     Active Substance: DOXORUBICIN
     Indication: Hodgkin^s disease
     Dosage: UNK, CYCLE, RECEIVED 2 CYCLES; FIRST-LINE OF CHEMOTHERAPY
     Route: 065
  2. IFOSFAMIDE [Suspect]
     Active Substance: IFOSFAMIDE
     Indication: Hodgkin^s disease
     Dosage: UNK, CYCLE, RECEIVED 2 CYCLES; SECOND-LINE OF CHEMOTHERAPY
     Route: 065
  3. ETOPOSIDE [Suspect]
     Active Substance: ETOPOSIDE
     Indication: Hodgkin^s disease
     Dosage: UNK, CYCLE, RECEIVED 2 CYCLES; SECOND-LINE OF CHEMOTHERAPY
     Route: 065
  4. CARBOPLATIN [Suspect]
     Active Substance: CARBOPLATIN
     Indication: Hodgkin^s disease
     Dosage: UNK, CYCLE, RECEIVED 2 CYCLES; SECOND-LINE OF CHEMOTHERAPY
     Route: 065
  5. BLEOMYCIN [Suspect]
     Active Substance: BLEOMYCIN SULFATE
     Indication: Hodgkin^s disease
     Dosage: UNK, CYCLE, RECEIVED 2 CYCLES; FIRST-LINE OF CHEMOTHERAPY
     Route: 065
  6. VINBLASTINE [Suspect]
     Active Substance: VINBLASTINE
     Indication: Hodgkin^s disease
     Dosage: UNK, CYCLE, RECEIVED 2 CYCLES; FIRST-LINE OF CHEMOTHERAPY
     Route: 065
  7. DACARBAZINE [Suspect]
     Active Substance: DACARBAZINE
     Indication: Hodgkin^s disease
     Dosage: UNK, CYCLE, RECEIVED 2 CYCLES; FIRST-LINE OF CHEMOTHERAPY
     Route: 065

REACTIONS (2)
  - Drug ineffective [Unknown]
  - Disease progression [Unknown]
